FAERS Safety Report 4386564-5 (Version None)
Quarter: 2004Q2

REPORT INFORMATION
  Report Type: 
  Country: None (occurrence: None)
  Receive Date: 20040623
  Receipt Date: 20040610
  Transmission Date: 20050107
  Serious: Yes (Other)
  Sender: FDA-Public Use
  Company Number: 2004038938

PATIENT
  Age: 30 Year
  Sex: Male

DRUGS (1)
  1. VIAGRA [Suspect]
     Indication: ILL-DEFINED DISORDER
     Dosage: ORAL
     Route: 048
     Dates: start: 20040604

REACTIONS (6)
  - DEPRESSION [None]
  - EYE DISORDER [None]
  - MENTAL DISORDER [None]
  - OVERDOSE [None]
  - SUICIDE ATTEMPT [None]
  - VISUAL DISTURBANCE [None]
